FAERS Safety Report 8826745 (Version 1)
Quarter: 2012Q4

REPORT INFORMATION
  Report Type: 
  Country: US (occurrence: US)
  Receive Date: 20121005
  Receipt Date: 20121005
  Transmission Date: 20130627
  Serious: Yes (Hospitalization)
  Sender: FDA-Public Use
  Company Number: CHPA2012US020575

PATIENT
  Age: 83 Year
  Sex: Female

DRUGS (1)
  1. EXCEDRIN EXTRA STRENGTH [Suspect]
     Indication: PAIN
     Dosage: 1/2 to 1 DF, 2 or 3 times a week, off and on
     Route: 048
     Dates: start: 2002

REACTIONS (5)
  - Heart rate increased [Recovered/Resolved]
  - Heart rate irregular [Recovered/Resolved]
  - Musculoskeletal pain [Not Recovered/Not Resolved]
  - Underdose [Unknown]
  - Wrong technique in drug usage process [Unknown]
